FAERS Safety Report 15131375 (Version 5)
Quarter: 2021Q4

REPORT INFORMATION
  Report Type: Report from Study
  Country: FR (occurrence: FR)
  Receive Date: 20180711
  Receipt Date: 20211029
  Transmission Date: 20220304
  Serious: Yes (Other)
  Sender: FDA-Public Use
  Company Number: FR-SHIRE-FR201724432

PATIENT
  Age: 13 Year
  Sex: Male

DRUGS (16)
  1. METHOTREXATE [Suspect]
     Active Substance: METHOTREXATE
     Indication: Acute lymphocytic leukaemia
     Dosage: 15 MILLIGRAM (15 MG, UNK)
     Route: 037
     Dates: start: 20161129
  2. PREDNISONE [Suspect]
     Active Substance: PREDNISONE
     Indication: Acute lymphocytic leukaemia
     Dosage: 100 MILLIGRAM (100 MG, UNK)
     Route: 048
     Dates: start: 20161129, end: 20161228
  3. DAUNORUBICIN [Suspect]
     Active Substance: DAUNORUBICIN
     Indication: Acute lymphocytic leukaemia
     Dosage: 65 MILLIGRAM (65 MG, UNK)
     Route: 042
     Dates: start: 20161130, end: 20161222
  4. MERCAPTOPURINE [Suspect]
     Active Substance: MERCAPTOPURINE
     Indication: Acute lymphocytic leukaemia
     Dosage: UNK
     Route: 065
  5. CYTARABINE [Suspect]
     Active Substance: CYTARABINE
     Indication: Acute lymphocytic leukaemia
     Dosage: 30 MILLIGRAM (30 MG, UNK)
     Route: 037
     Dates: start: 20161202
  6. CYTARABINE [Suspect]
     Active Substance: CYTARABINE
     Dosage: 110 MILLIGRAM (110 MG, UNK)
     Route: 042
     Dates: start: 20170115
  7. CYTARABINE [Suspect]
     Active Substance: CYTARABINE
     Dosage: 110 MILLIGRAM (110 MG, UNK)
     Route: 042
     Dates: start: 20161202
  8. CYCLOPHOSPHAMIDE [Suspect]
     Active Substance: CYCLOPHOSPHAMIDE
     Indication: Acute lymphocytic leukaemia
     Dosage: 1500 MILLIGRAM (1500 MG, UNK)
     Route: 042
     Dates: start: 20170113, end: 20170209
  9. CYCLOPHOSPHAMIDE [Suspect]
     Active Substance: CYCLOPHOSPHAMIDE
     Dosage: 1640 MILLIGRAM (1640 MG, UNK)
     Route: 042
     Dates: start: 20170621, end: 20170627
  10. ADRIAMYCIN [Suspect]
     Active Substance: DOXORUBICIN HYDROCHLORIDE
     Indication: Acute lymphocytic leukaemia
     Dosage: 42 MILLIGRAM (42 MG, UNK)
     Route: 042
     Dates: start: 20170530
  11. DEXAMETHASONE [Suspect]
     Active Substance: DEXAMETHASONE
     Indication: Acute lymphocytic leukaemia
     Dosage: 96 MILLIGRAM (96 MG, UNK)
     Route: 048
     Dates: start: 20170317, end: 20170322
  12. DEXAMETHASONE [Suspect]
     Active Substance: DEXAMETHASONE
     Dosage: 16.5 MILLIGRAM (16.5 MG, UNK)
     Route: 048
     Dates: start: 20170530
  13. VINCRISTINE [Suspect]
     Active Substance: VINCRISTINE
     Indication: Acute lymphocytic leukaemia
     Dosage: 2 MILLIGRAM (2 MG, UNK)
     Route: 042
     Dates: start: 20161130
  14. HYDROCORTISONE [Suspect]
     Active Substance: HYDROCORTISONE
     Indication: Acute lymphocytic leukaemia
     Dosage: 15 MILLIGRAM (15 MG, UNK)
     Route: 037
     Dates: start: 20161202
  15. PEGASPARGASE [Suspect]
     Active Substance: PEGASPARGASE
     Indication: Acute lymphocytic leukaemia
     Dosage: 4200 INTERNATIONAL UNIT (4200 IU, UNK)
     Route: 042
     Dates: start: 20161205
  16. DOXORUBICIN HYDROCHLORIDE [Suspect]
     Active Substance: DOXORUBICIN HYDROCHLORIDE
     Indication: Acute lymphocytic leukaemia
     Dosage: 42 MILLIGRAM (42 MG, UNK)
     Route: 042
     Dates: start: 20170530

REACTIONS (3)
  - Hypertriglyceridaemia [Recovered/Resolved]
  - Off label use [Unknown]
  - Product use in unapproved indication [Unknown]

NARRATIVE: CASE EVENT DATE: 20170807
